FAERS Safety Report 9067016 (Version 1)
Quarter: 2013Q1

REPORT INFORMATION
  Report Type: Report from Study
  Country: US (occurrence: US)
  Receive Date: 20130131
  Receipt Date: 20130131
  Transmission Date: 20140127
  Serious: No
  Sender: FDA-Public Use
  Company Number: US-ABBOTT-12P-163-0999166-00

PATIENT
  Age: 25 Year
  Sex: Female
  Weight: 52.21 kg

DRUGS (10)
  1. HUMIRA [Suspect]
     Indication: ANKYLOSING SPONDYLITIS
     Dates: start: 20101227, end: 20110928
  2. PRENATAL VITAMIN NOS [Concomitant]
     Indication: PRODUCT USED FOR UNKNOWN INDICATION
     Dosage: PILLS
     Route: 048
     Dates: start: 20110128, end: 20110901
  3. PRENATAL VITAMIN NOS [Concomitant]
     Route: 048
     Dates: start: 20110902, end: 20110928
  4. CALCIUM [Concomitant]
     Indication: PRODUCT USED FOR UNKNOWN INDICATION
     Dosage: PILLS
     Route: 048
     Dates: start: 20110128, end: 20110621
  5. CALCIUM [Concomitant]
     Dosage: 2 TO 4 PILLS PER DAY
     Route: 048
     Dates: start: 20110622, end: 20110928
  6. TYLENOL [Concomitant]
     Indication: HEADACHE
     Dosage: PILLS
     Route: 048
     Dates: start: 20110216, end: 20110216
  7. TYLENOL [Concomitant]
     Dosage: 2.5 A MONTH
     Route: 048
     Dates: start: 20101227, end: 20110215
  8. TYLENOL [Concomitant]
     Dosage: 2.5 A MONTH
     Route: 048
     Dates: start: 20110217, end: 20110630
  9. RELAFEN [Concomitant]
     Indication: ANKYLOSING SPONDYLITIS
     Dosage: 1 TO 2 TIMES PER MONTH
     Route: 048
     Dates: start: 20110415, end: 20110630
  10. FLU VACCINE NOS [Concomitant]
     Indication: ANTIVIRAL PROPHYLAXIS
     Dosage: 1 SHOT
     Route: 050
     Dates: start: 20110919, end: 20110919

REACTIONS (6)
  - Loss of consciousness [Unknown]
  - Respiratory tract infection [Unknown]
  - Headache [Unknown]
  - Blood iron decreased [Unknown]
  - Hypotension [Unknown]
  - Dehydration [Unknown]
